FAERS Safety Report 13875911 (Version 1)
Quarter: 2017Q3

REPORT INFORMATION
  Report Type: Spontaneous
  Country: US (occurrence: US)
  Receive Date: 20170814
  Receipt Date: 20170814
  Transmission Date: 20171127
  Serious: Yes (Disabling)
  Sender: FDA-Public Use
  Company Number: None

PATIENT
  Sex: Female
  Weight: 42.75 kg

DRUGS (7)
  1. DICLOFENAC [Concomitant]
     Active Substance: DICLOFENAC
  2. METHACARBONAL [Concomitant]
  3. IRON [Concomitant]
     Active Substance: IRON
  4. TRAMIDOL [Concomitant]
  5. DOXEPIN [Concomitant]
     Active Substance: DOXEPIN
  6. TOPIRAMATE. [Concomitant]
     Active Substance: TOPIRAMATE
  7. LUPRON [Suspect]
     Active Substance: LEUPROLIDE ACETATE
     Indication: ENDOMETRIOSIS
     Dosage: QUANTITY:5 INJECTION(S);?
     Route: 058
     Dates: start: 20130101, end: 20130601

REACTIONS (8)
  - Malaise [None]
  - Arthralgia [None]
  - Dental caries [None]
  - Amnesia [None]
  - Myalgia [None]
  - Aphasia [None]
  - Bone pain [None]
  - Disorientation [None]

NARRATIVE: CASE EVENT DATE: 20130605
